FAERS Safety Report 5068466-4 (Version None)
Quarter: 2006Q3

REPORT INFORMATION
  Report Type: 
  Country: None (occurrence: None)
  Receive Date: 20060802
  Receipt Date: 20051012
  Transmission Date: 20061208
  Serious: No
  Sender: FDA-Public Use
  Company Number: US-BRISTOL-MYERS SQUIBB COMPANY-13141916

PATIENT
  Age: 79 Year
  Sex: Male
  Weight: 79 kg

DRUGS (11)
  1. COUMADIN [Suspect]
     Indication: HEART RATE IRREGULAR
     Dosage: 5MG TABS/D X 3 PER WK + 7.5MG (1 AND 1/2 TAB) X 4 PER WK; THEN 7.5MG X 6 PER WK + 10MG X 1 PER WK
     Route: 048
     Dates: start: 20051001
  2. WARFARIN SODIUM [Suspect]
     Indication: HEART RATE IRREGULAR
     Dosage: STARTED W/ 5MG TABS/D X 3 PER WK + 7.5MG (1 AND 1/2 TAB) X 4 PER WK, THEN SWITCHED TO COUMADIN
     Route: 048
     Dates: start: 20040101, end: 20051001
  3. DIOVAN [Concomitant]
  4. DIGOXIN [Concomitant]
  5. FOSAMAX [Concomitant]
  6. SEREVENT [Concomitant]
  7. PULMICORT [Concomitant]
  8. PREVACID [Concomitant]
  9. PREDNISONE [Concomitant]
  10. ALTOPREV [Concomitant]
  11. CARTIA XT [Concomitant]

REACTIONS (1)
  - RASH PRURITIC [None]
